FAERS Safety Report 25123960 (Version 1)
Quarter: 2025Q1

REPORT INFORMATION
  Report Type: Spontaneous
  Country: US (occurrence: US)
  Receive Date: 20250326
  Receipt Date: 20250326
  Transmission Date: 20250408
  Serious: Yes (Death, Hospitalization, Other)
  Sender: RANBAXY
  Company Number: US-SUN PHARMACEUTICAL INDUSTRIES LTD-2025R1-500075

PATIENT
  Age: 34 Year
  Sex: Male

DRUGS (3)
  1. FENTANYL [Suspect]
     Active Substance: FENTANYL
     Indication: Drug abuse
     Route: 065
  2. PROMETHAZINE [Suspect]
     Active Substance: PROMETHAZINE HYDROCHLORIDE
     Indication: Drug abuse
     Route: 065
  3. METHAMPHETAMINE [Suspect]
     Active Substance: METHAMPHETAMINE
     Indication: Drug abuse
     Route: 065

REACTIONS (8)
  - Drug use disorder [Fatal]
  - Acidosis [Fatal]
  - Leukocytosis [Fatal]
  - Metabolic acidosis [Fatal]
  - Blood osmolarity increased [Fatal]
  - Lactic acidosis [Fatal]
  - Brain oedema [Fatal]
  - Brain herniation [Fatal]
